FAERS Safety Report 6059867-6 (Version None)
Quarter: 2009Q1

REPORT INFORMATION
  Report Type: 
  Country: None (occurrence: None)
  Receive Date: 20090130
  Receipt Date: 20090119
  Transmission Date: 20090719
  Serious: Yes (Hospitalization)
  Sender: FDA-Public Use
  Company Number: ES-ELI_LILLY_AND_COMPANY-ES200901003109

PATIENT
  Age: 89 Year
  Sex: Female

DRUGS (6)
  1. FORTEO [Suspect]
     Indication: OSTEOPOROSIS
     Dosage: 20 UG, UNK
     Route: 058
     Dates: start: 20080101
  2. INSULIN [Concomitant]
     Indication: BLOOD INSULIN
  3. OMEPRAZOLE [Concomitant]
  4. ASTUDAL [Concomitant]
     Dosage: 5 MG, UNK
     Dates: end: 20090110
  5. CICLOFALINA [Concomitant]
     Dosage: 800 D/F, UNK
     Dates: end: 20090110
  6. ISCOVER [Concomitant]

REACTIONS (3)
  - CEREBRAL THROMBOSIS [None]
  - MOBILITY DECREASED [None]
  - RESPIRATORY TRACT INFECTION [None]
